FAERS Safety Report 9704639 (Version 2)
Quarter: 2013Q4

REPORT INFORMATION
  Report Type: Report from Study
  Country: IT (occurrence: IT)
  Receive Date: 20131122
  Receipt Date: 20131204
  Transmission Date: 20140711
  Serious: Yes (Death, Hospitalization)
  Sender: FDA-Public Use
  Company Number: IT-PFIZER INC-2013333186

PATIENT
  Sex: 0

DRUGS (2)
  1. AMIODARONE HCL [Suspect]
     Dosage: UNK
     Route: 065
  2. BISOPROLOL FUMARATE [Interacting]
     Dosage: UNK

REACTIONS (2)
  - Drug interaction [Fatal]
  - Cardiac arrest [Fatal]
